FAERS Safety Report 9310231 (Version 1)
Quarter: 2013Q2

REPORT INFORMATION
  Report Type: Spontaneous
  Country: CH (occurrence: CH)
  Receive Date: 20130527
  Receipt Date: 20130527
  Transmission Date: 20140414
  Serious: Yes (Other)
  Sender: FDA-Public Use
  Company Number: PHHY2013CH051029

PATIENT
  Age: 30 Year
  Sex: Female

DRUGS (2)
  1. SANDOSTATIN LAR [Suspect]
     Indication: ACROMEGALY
     Dosage: 20 MG, ONCE EVERY MONTH
     Route: 030
  2. PEGVISOMANT [Suspect]
     Indication: ACROMEGALY
     Dosage: 15 MG, QD
     Route: 058

REACTIONS (21)
  - Meningism [Unknown]
  - C-reactive protein increased [Unknown]
  - Brain mass [Unknown]
  - Central nervous system abscess [Unknown]
  - Leukocytosis [Unknown]
  - Mononuclear cell count abnormal [Unknown]
  - Blood cortisol decreased [Unknown]
  - Hypogonadism [Unknown]
  - General physical health deterioration [Unknown]
  - Protein total increased [Unknown]
  - Streptococcus test positive [Unknown]
  - Hemianopia [Unknown]
  - Eye disorder [Recovered/Resolved]
  - Paresis [Unknown]
  - Diabetes insipidus [Unknown]
  - Polyuria [Unknown]
  - Polydipsia [Unknown]
  - Hypothyroidism [Recovered/Resolved]
  - Body temperature increased [Unknown]
  - Back pain [Unknown]
  - Neck pain [Unknown]
